FAERS Safety Report 8359220-6 (Version None)
Quarter: 2012Q2

REPORT INFORMATION
  Report Type: 
  Country: None (occurrence: None)
  Receive Date: 20120511
  Receipt Date: 20120501
  Transmission Date: 20120825
  Serious: Yes (Other)
  Sender: FDA-Public Use
  Company Number: US-2012-10507

PATIENT
  Age: 4 Year
  Sex: Male

DRUGS (9)
  1. ACYCLOVIR [Concomitant]
     Indication: STAPHYLOCOCCAL BACTERAEMIA
  2. CLARITHROMYCIN [Suspect]
  3. TRIMETHOPRIM + SULFAMETHOXAZOLE [Suspect]
     Indication: STAPHYLOCOCCAL BACTERAEMIA
  4. ISONIAZID [Suspect]
  5. VANCOMYCIN [Suspect]
     Indication: STAPHYLOCOCCAL BACTERAEMIA
  6. FLUCONAZOLE [Suspect]
     Indication: STAPHYLOCOCCAL BACTERAEMIA
  7. ETHAMBUTOL HYDROCHLORIDE [Suspect]
     Indication: STAPHYLOCOCCAL BACTERAEMIA
  8. BUSULFAN [Suspect]
     Dosage: 75 MG/M2
  9. RIFAMPICIN [Suspect]
     Indication: STAPHYLOCOCCAL BACTERAEMIA

REACTIONS (3)
  - MYELODYSPLASTIC SYNDROME [None]
  - NEUTROPENIA [None]
  - BONE MARROW FAILURE [None]
